FAERS Safety Report 9551443 (Version 1)
Quarter: 2013Q2

REPORT INFORMATION
  Report Type: Spontaneous
  Country: US (occurrence: None)
  Receive Date: 20130627
  Receipt Date: 20130627
  Transmission Date: 20140414
  Serious: No
  Sender: FDA-Public Use
  Company Number: 1000045266

PATIENT
  Age: 57 Year
  Sex: Female

DRUGS (6)
  1. LINZESS [Suspect]
     Indication: CONSTIPATION
     Route: 048
     Dates: start: 20130430, end: 20130515
  2. OMEPRAZOLE [Concomitant]
  3. LEVOTHYROXINE (LEVOTHYROXINE SODIUM) [Concomitant]
  4. ASPIRIN (ACETYLSALICYLIC ACID) [Concomitant]
  5. CLONAZEPAM (CLONAZEPAM) (CLONAZEPAM) [Concomitant]
  6. HORMONES (NOS) (HORMONES (NOS)) [Concomitant]

REACTIONS (2)
  - Drug ineffective [None]
  - Dizziness [None]
